FAERS Safety Report 7805412-1 (Version None)
Quarter: 2011Q4

REPORT INFORMATION
  Report Type: 
  Country: None (occurrence: None)
  Receive Date: 20111010
  Receipt Date: 20111004
  Transmission Date: 20120403
  Serious: Yes (Other)
  Sender: FDA-Public Use
  Company Number: BR-ABBOTT-11P-020-0860970-00

PATIENT
  Sex: Female

DRUGS (1)
  1. HUMIRA [Suspect]
     Indication: ANKYLOSING SPONDYLITIS
     Route: 058

REACTIONS (2)
  - TRANSAMINASES INCREASED [None]
  - HEPATITIS [None]
